FAERS Safety Report 10768854 (Version 1)
Quarter: 2015Q1

REPORT INFORMATION
  Report Type: Spontaneous
  Country: FR (occurrence: FR)
  Receive Date: 20150206
  Receipt Date: 20150206
  Transmission Date: 20150721
  Serious: Yes (Hospitalization)
  Sender: FDA-Public Use
  Company Number: FR-ASTRAZENECA-2015SE10627

PATIENT
  Age: 75 Year
  Sex: Female

DRUGS (6)
  1. LEXOMIL ROCHE [Concomitant]
     Active Substance: BROMAZEPAM
     Route: 048
  2. OROCAL [Concomitant]
     Active Substance: CALCIUM CARBONATE
     Route: 048
  3. SEROPLEX [Concomitant]
     Active Substance: ESCITALOPRAM OXALATE
     Route: 048
  4. CRESTOR [Suspect]
     Active Substance: ROSUVASTATIN CALCIUM
     Route: 048
  5. OLMETEC [Suspect]
     Active Substance: OLMESARTAN MEDOXOMIL
     Route: 048
     Dates: end: 20141013
  6. ADROVANCE [Concomitant]
     Active Substance: ALENDRONATE SODIUM\CHOLECALCIFEROL
     Route: 048

REACTIONS (2)
  - Intestinal villi atrophy [Recovered/Resolved]
  - Diarrhoea [Recovered/Resolved]

NARRATIVE: CASE EVENT DATE: 201405
